FAERS Safety Report 9473982 (Version 2)
Quarter: 2014Q1

REPORT INFORMATION
  Report Type: Report from Study
  Country: US (occurrence: US)
  Receive Date: 20130823
  Receipt Date: 20140128
  Transmission Date: 20141002
  Serious: Yes (Hospitalization)
  Sender: FDA-Public Use
  Company Number: US-SANOFI-AVENTIS-2013SA083551

PATIENT
  Age: 59 Year
  Sex: Female
  Weight: 92 kg

DRUGS (15)
  1. DOCETAXEL [Suspect]
     Indication: NON-SMALL CELL LUNG CANCER
     Route: 042
     Dates: start: 20121224, end: 20121224
  2. DOCETAXEL [Suspect]
     Indication: NON-SMALL CELL LUNG CANCER
     Route: 042
     Dates: start: 20130730, end: 20130730
  3. INVESTIGATIONAL DRUG [Suspect]
     Indication: NON-SMALL CELL LUNG CANCER
     Route: 042
     Dates: start: 20121224, end: 20121224
  4. INVESTIGATIONAL DRUG [Suspect]
     Indication: NON-SMALL CELL LUNG CANCER
     Route: 042
     Dates: start: 20130802, end: 20130802
  5. INVESTIGATIONAL DRUG [Suspect]
     Indication: SINGLE PHOTON EMISSION COMPUTERISED TOMOGRAM
     Route: 042
     Dates: start: 20121212, end: 20121212
  6. FOLIC ACID [Suspect]
     Indication: SINGLE PHOTON EMISSION COMPUTERISED TOMOGRAM
     Route: 065
     Dates: start: 20121212, end: 20121212
  7. DEXAMETHASONE [Concomitant]
     Indication: CHEMOTHERAPY
     Dosage: DAY BEFORE, DAY OF AND DAY AFTER CHEMOTHERAPY
     Route: 048
     Dates: start: 20121224
  8. EMLA CREAM [Concomitant]
     Indication: DRY SKIN
     Route: 065
     Dates: start: 20130427
  9. GABAPENTIN [Concomitant]
     Indication: NEUROPATHY PERIPHERAL
     Route: 048
     Dates: start: 20130529, end: 20130531
  10. SENNA [Concomitant]
     Indication: CONSTIPATION
     Route: 065
     Dates: start: 2012
  11. PRAVASTATIN [Concomitant]
     Indication: HYPERTENSION
     Route: 048
     Dates: start: 20130212
  12. NEULASTA [Concomitant]
     Indication: CHEMOTHERAPY
     Route: 065
     Dates: start: 20130115
  13. OXYCODONE [Concomitant]
     Indication: PAIN
     Route: 048
     Dates: start: 20130627
  14. PROCHLORPERAZINE MALEATE [Concomitant]
     Indication: PRODUCT USED FOR UNKNOWN INDICATION
     Route: 048
  15. HYDROCORTISONE [Concomitant]
     Indication: PRODUCT USED FOR UNKNOWN INDICATION
     Route: 061

REACTIONS (3)
  - Blood sodium decreased [Recovered/Resolved]
  - Pyrexia [Recovered/Resolved]
  - Neutropenia [Recovered/Resolved]
